FAERS Safety Report 24559918 (Version 2)
Quarter: 2024Q4

REPORT INFORMATION
  Report Type: Spontaneous
  Country: CA (occurrence: CA)
  Receive Date: 20241029
  Receipt Date: 20241104
  Transmission Date: 20250114
  Serious: Yes (Hospitalization, Other)
  Sender: CELLTRION
  Company Number: CA-PFIZER INC-PV202400138159

PATIENT

DRUGS (12)
  1. INFLECTRA [Suspect]
     Active Substance: INFLIXIMAB-DYYB
     Indication: Crohn^s disease
     Dosage: 400 MG, EVERY 6 WEEKS
     Route: 042
  2. INFLECTRA [Suspect]
     Active Substance: INFLIXIMAB-DYYB
     Dosage: 400 MG, EVERY 6 WEEKS
     Route: 042
     Dates: start: 20241022
  3. DEXLANSOPRAZOLE [Concomitant]
     Active Substance: DEXLANSOPRAZOLE
     Dosage: UNK
  4. AZATHIOPRINE [Concomitant]
     Active Substance: AZATHIOPRINE
     Dosage: UNK
  5. PLAQUENIL [Concomitant]
     Active Substance: HYDROXYCHLOROQUINE SULFATE
     Dosage: UNK
  6. AMLODIPINE [Concomitant]
     Active Substance: AMLODIPINE BESYLATE
     Dosage: UNK
  7. DULOXETINE [Concomitant]
     Active Substance: DULOXETINE
     Dosage: UNK
  8. LAMOTRIGINE [Concomitant]
     Active Substance: LAMOTRIGINE
     Dosage: UNK
  9. MONTELUKAST [Concomitant]
     Active Substance: MONTELUKAST
     Dosage: UNK
  10. PRAMIPEXOLE [Concomitant]
     Active Substance: PRAMIPEXOLE\PRAMIPEXOLE DIHYDROCHLORIDE
     Dosage: UNK
  11. PREGABALIN [Concomitant]
     Active Substance: PREGABALIN
     Dosage: UNK
  12. QUETIAPINE [Concomitant]
     Active Substance: QUETIAPINE
     Dosage: UNK

REACTIONS (2)
  - Transient ischaemic attack [Recovering/Resolving]
  - Intracranial aneurysm [Unknown]

NARRATIVE: CASE EVENT DATE: 20241001
